FAERS Safety Report 17570045 (Version 2)
Quarter: 2020Q2

REPORT INFORMATION
  Report Type: Report from Study
  Country: IT (occurrence: IT)
  Receive Date: 20200323
  Receipt Date: 20200501
  Transmission Date: 20200713
  Serious: Yes (Other)
  Sender: FDA-Public Use
  Company Number: IT-ROCHE-2571071

PATIENT
  Age: 50 Year
  Sex: Male

DRUGS (6)
  1. MELPHALAN. [Concomitant]
     Active Substance: MELPHALAN
  2. ETOPOSIDE. [Suspect]
     Active Substance: ETOPOSIDE
     Indication: BONE MARROW CONDITIONING REGIMEN
     Route: 065
  3. CYTARABINE. [Concomitant]
     Active Substance: CYTARABINE
  4. GANCICLOVIR. [Suspect]
     Active Substance: GANCICLOVIR
     Indication: ANTIVIRAL TREATMENT
     Route: 065
  5. FOSCARNET [Concomitant]
     Active Substance: FOSCARNET
  6. LOMUSTINE. [Concomitant]
     Active Substance: LOMUSTINE

REACTIONS (1)
  - Kaposi^s sarcoma [Unknown]
